FAERS Safety Report 5988135-3 (Version None)
Quarter: 2008Q4

REPORT INFORMATION
  Report Type: 
  Country: None (occurrence: None)
  Receive Date: 20081209
  Receipt Date: 20081209
  Transmission Date: 20090506
  Serious: Yes (Other)
  Sender: FDA-Public Use
  Company Number: None

PATIENT
  Sex: Male
  Weight: 97.5234 kg

DRUGS (2)
  1. ATRIPLA [Suspect]
     Indication: HIV INFECTION
     Dosage: 300/200/600 MG TABLET ONCE DAILY PO
     Route: 048
     Dates: start: 20081125, end: 20081207
  2. SULFADIAZINE [Suspect]
     Dosage: PO
     Route: 048

REACTIONS (4)
  - DRUG DISPENSING ERROR [None]
  - MEDICATION ERROR [None]
  - RASH MACULO-PAPULAR [None]
  - RASH PRURITIC [None]
